FAERS Safety Report 7412690-X (Version None)
Quarter: 2011Q2

REPORT INFORMATION
  Report Type: 
  Country: None (occurrence: None)
  Receive Date: 20110413
  Receipt Date: 20101026
  Transmission Date: 20111010
  Serious: Yes (Hospitalization, Other)
  Sender: FDA-Public Use
  Company Number: US-BAYER-201025114NA

PATIENT
  Age: 35 Year
  Sex: Female
  Weight: 60.317 kg

DRUGS (6)
  1. FLOVENT [Concomitant]
     Indication: ASTHMA
  2. YASMIN [Suspect]
     Dosage: UNK
     Dates: start: 20030901, end: 20061201
  3. VENTOLIN [Concomitant]
     Indication: ASTHMA
  4. YASMIN [Suspect]
     Indication: PRODUCT USED FOR UNKNOWN INDICATION
     Dosage: UNK
     Dates: start: 20030301, end: 20030501
  5. VIOXX [Concomitant]
     Dosage: UNK
     Dates: start: 20010101, end: 20030101
  6. HYDROCODONE [Concomitant]
     Indication: PAIN
     Dosage: 5 MG, PRN

REACTIONS (6)
  - JAUNDICE CHOLESTATIC [None]
  - CHOLECYSTITIS [None]
  - GALLBLADDER INJURY [None]
  - BILE DUCT STONE [None]
  - CHOLELITHIASIS [None]
  - PANCREATITIS [None]
